FAERS Safety Report 8785986 (Version 2)
Quarter: 2012Q4

REPORT INFORMATION
  Report Type: 
  Country: US (occurrence: US)
  Receive Date: 20120914
  Receipt Date: 20120921
  Transmission Date: 20130627
  Serious: Yes (Death, Hospitalization)
  Sender: FDA-Public Use
  Company Number: US-B.I. PHARMACEUTICALS,INC./RIDGEFIELD-2012-BP-22606BP

PATIENT
  Age: 85 Year
  Sex: Female

DRUGS (45)
  1. PRADAXA [Suspect]
     Indication: ATRIAL FIBRILLATION
     Dosage: 150 mg
     Route: 048
     Dates: start: 2010, end: 2012
  2. PRADAXA [Suspect]
     Indication: ATRIAL FIBRILLATION
     Dosage: 150 mg
     Route: 048
     Dates: start: 20120302
  3. PREDNISONE [Concomitant]
     Dosage: 2.5 mg
     Route: 048
  4. METOLAZONE [Concomitant]
     Dosage: 5 mg
     Route: 048
  5. DIGOXIN [Concomitant]
     Dosage: 125 mcg
     Route: 048
  6. OMEGA 3 [Concomitant]
     Dosage: 2000 mg
     Route: 048
     Dates: start: 20120613
  7. FUROSEMIDE [Concomitant]
     Dosage: 40 mg
     Route: 048
     Dates: start: 20120613
  8. FUROSEMIDE [Concomitant]
     Dosage: 20 mg
     Route: 048
  9. JANUVIA [Concomitant]
     Dosage: 50 mg
     Route: 048
  10. CALCIUM WITH VITAMIN D [Concomitant]
     Route: 048
     Dates: start: 20120613
  11. LORATIDINE [Concomitant]
     Dosage: 10 mg
     Route: 048
  12. LISINOPRIL [Concomitant]
     Dosage: 20 mg
     Route: 048
  13. METOPROLOL [Concomitant]
     Dosage: 25 mg
     Route: 048
     Dates: start: 20120613
  14. VITAMIN D [Concomitant]
  15. ALEMDRONATE [Concomitant]
  16. LACRI-LUBE [Concomitant]
     Dates: start: 20120613
  17. SIMVASTATIN [Concomitant]
     Route: 048
     Dates: start: 20120613
  18. TRAVATAN [Concomitant]
     Dates: start: 20120613
  19. MVI WITH MINERALS [Concomitant]
     Route: 048
     Dates: start: 20120613
  20. SYNTHROID [Concomitant]
     Route: 048
     Dates: start: 20120613
  21. MAGNESIUM OXIDE [Concomitant]
     Dosage: 400 mg
     Dates: start: 20120613
  22. VITAMIN B12 [Concomitant]
     Dates: start: 20120613
  23. ASPIRIN [Concomitant]
     Route: 048
     Dates: start: 20120613
  24. FENOFIBRATE [Concomitant]
     Route: 048
     Dates: start: 20120613
  25. FOLIC ACID [Concomitant]
     Route: 048
     Dates: start: 20120613
  26. ICAPS WITH LUTEIN AND ZEAXAN [Concomitant]
     Route: 048
     Dates: start: 20120613
  27. OMEPRAZOLE [Concomitant]
     Route: 048
     Dates: start: 20120613
  28. OXYBUTYNIN [Concomitant]
     Route: 048
     Dates: start: 20120613
  29. TRAMADOL [Concomitant]
     Route: 048
     Dates: start: 20120613
  30. POTASSIUM CHLORIDE [Concomitant]
     Dosage: 60 mEq
     Route: 048
     Dates: start: 20120613
  31. AMIODARONE [Concomitant]
     Dosage: 400 mg
     Route: 048
     Dates: start: 20120613
  32. SINEMET [Concomitant]
     Route: 048
     Dates: start: 20120613
  33. GABAPENTIN [Concomitant]
     Dosage: 600 mg
     Route: 048
     Dates: start: 20120613
  34. NYSTATIN [Concomitant]
     Route: 048
     Dates: start: 20120613
  35. REFRESH [Concomitant]
     Dates: start: 20120613
  36. FERROUS SULFATE [Concomitant]
     Dosage: 650 mg
     Route: 048
     Dates: start: 20120613
  37. ROPINIROLE [Concomitant]
     Dosage: 2 mg
     Route: 048
     Dates: start: 20120613
  38. FLUTICASONE [Concomitant]
     Dosage: 0.1 mg
     Dates: start: 20120613
  39. MAGNESIUM OXIDE [Concomitant]
     Dosage: 800 mg
     Route: 048
     Dates: start: 20120620
  40. VANCOMYCIN [Concomitant]
     Route: 048
     Dates: start: 20120613, end: 20120627
  41. APAP [Concomitant]
     Route: 048
     Dates: start: 20120613
  42. BISACODYL [Concomitant]
     Dates: start: 20120613
  43. SEROQUEL [Concomitant]
     Route: 048
     Dates: start: 20120613
  44. MILK OF MAGNESIA [Concomitant]
     Route: 048
     Dates: start: 20120613
  45. IBUPROFEN [Concomitant]
     Route: 048
     Dates: start: 20120613

REACTIONS (6)
  - Clostridium difficile sepsis [Fatal]
  - Dyspnoea [Fatal]
  - Pulmonary congestion [Fatal]
  - Haemoglobin decreased [Fatal]
  - Clostridium difficile infection [Recovered/Resolved]
  - Gastrointestinal haemorrhage [Recovered/Resolved]
